FAERS Safety Report 8442776-2 (Version None)
Quarter: 2012Q2

REPORT INFORMATION
  Report Type: 
  Country: None (occurrence: None)
  Receive Date: 20120615
  Receipt Date: 20120611
  Transmission Date: 20120825
  Serious: Yes (Death, Other)
  Sender: FDA-Public Use
  Company Number: US-CELGENEUS-163-21880-11100920

PATIENT
  Age: 73 Year
  Sex: Male
  Weight: 104.6 kg

DRUGS (24)
  1. THALOMID [Suspect]
     Dosage: 100 MILLIGRAM
     Route: 048
     Dates: start: 20080904, end: 20091214
  2. LOPERAMIDE [Concomitant]
     Route: 065
  3. ASPIRIN [Concomitant]
     Route: 065
  4. DEXAMETHASONE [Concomitant]
     Indication: MULTIPLE MYELOMA
     Dosage: 8 TABLET
     Route: 048
     Dates: start: 20110316
  5. DURAGESIC-100 [Concomitant]
     Indication: PAIN
     Dosage: 25 MICROGRAM
     Route: 061
  6. VITAMIN B-12 [Concomitant]
     Route: 065
  7. PROAIR HFA [Concomitant]
     Route: 055
  8. GARLIC [Concomitant]
     Dosage: 1-4 TABLETS
     Route: 048
  9. REVLIMID [Suspect]
     Dosage: 10 MILLIGRAM
     Route: 048
     Dates: start: 20110419, end: 20110726
  10. MELPHALAN HYDROCHLORIDE [Suspect]
     Dosage: 9 MILLIGRAM/SQ. METER
     Route: 065
     Dates: start: 20080904, end: 20091214
  11. MIRALAX [Concomitant]
     Indication: CONSTIPATION
     Dosage: 17 GRAM
     Route: 065
  12. VITAMIN E [Concomitant]
     Dosage: 1000 UNIT
     Route: 048
  13. PSEUDOEPHEDRINE HCL [Concomitant]
     Route: 048
  14. REVLIMID [Suspect]
     Indication: MULTIPLE MYELOMA
     Dosage: 15 MILLIGRAM
     Route: 048
     Dates: start: 20110321
  15. DILAUDID [Concomitant]
     Indication: PAIN MANAGEMENT
     Dosage: 4-8MG
     Route: 041
     Dates: start: 20111201, end: 20111201
  16. NEUPOGEN [Concomitant]
     Route: 065
  17. TALWIN NX [Concomitant]
     Indication: PAIN
     Dosage: 1-2 TABLETS
     Route: 048
  18. ANTACID MEDICINE (HOMEOPATHIC) [Concomitant]
     Indication: ANTACID THERAPY
     Route: 048
  19. VITAMIN D [Concomitant]
     Dosage: 1000 UNIT
     Route: 048
  20. MS CONTIN [Concomitant]
     Dosage: 30 MILLIGRAM
     Route: 065
  21. SIMVASTATIN [Concomitant]
     Dosage: 20 MILLIGRAM
     Route: 048
  22. MAGNESIUM OXIDE [Concomitant]
     Dosage: 2
     Route: 048
  23. PREDNISONE [Suspect]
     Dosage: 100 MILLIGRAM
     Route: 065
     Dates: start: 20080904, end: 20091214
  24. AMBIEN [Concomitant]
     Dosage: 10 MILLIGRAM
     Route: 065

REACTIONS (3)
  - RENAL FAILURE [None]
  - MYELODYSPLASTIC SYNDROME [None]
  - SEPSIS [None]
